FAERS Safety Report 22279922 (Version 2)
Quarter: 2023Q2

REPORT INFORMATION
  Report Type: Spontaneous
  Country: JP (occurrence: JP)
  Receive Date: 20230503
  Receipt Date: 20230607
  Transmission Date: 20230721
  Serious: Yes (Death, Other)
  Sender: FDA-Public Use
  Company Number: JP-MSD-M2023-17446

PATIENT
  Age: 45 Year
  Sex: Male

DRUGS (2)
  1. ZERBAXA [Suspect]
     Active Substance: CEFTOLOZANE SULFATE\TAZOBACTAM SODIUM
     Indication: Pneumonia pseudomonal
     Dosage: 1500 MILLIGRAM, TID
     Route: 041
     Dates: start: 20220512, end: 20220518
  2. MEROPENEM [Concomitant]
     Active Substance: MEROPENEM
     Indication: Pneumonia pseudomonal
     Dosage: UNK
     Route: 065

REACTIONS (3)
  - Hyperkalaemia [Fatal]
  - Ventricular fibrillation [Fatal]
  - Anuria [Unknown]

NARRATIVE: CASE EVENT DATE: 20220501
